FAERS Safety Report 7984040-1 (Version None)
Quarter: 2011Q4

REPORT INFORMATION
  Report Type: 
  Country: None (occurrence: None)
  Receive Date: 20111216
  Receipt Date: 20111214
  Transmission Date: 20120403
  Serious: Yes (Other)
  Sender: FDA-Public Use
  Company Number: FR-PFIZER INC-2011303818

PATIENT
  Age: 80 Year
  Sex: Female

DRUGS (7)
  1. OMEPRAZOLE [Suspect]
     Dosage: 10 MG, 1X/DAY
     Route: 048
  2. ARTHROTEC [Suspect]
     Dosage: 75 MG, 2X/DAY
     Route: 048
     Dates: end: 20110915
  3. IRBESARTAN AND HYDROCHLOROTHIAZIDE [Suspect]
     Dosage: 300MG/25MG, 1 DFX/1 DAY
     Route: 048
     Dates: end: 20110915
  4. GLUCOVANCE [Suspect]
     Dosage: 500MG/5MG, 1DFX/3DAY
     Route: 048
     Dates: end: 20110915
  5. ACETAMINOPHEN [Suspect]
     Dosage: 1 G, 3X/DAY
     Route: 048
  6. LORAZEPAM [Suspect]
     Dosage: 1 MG, 1X/DAY
     Route: 048
  7. METHOTREXATE [Suspect]
     Dosage: 12.5 MG, WEEKLY
     Route: 048

REACTIONS (1)
  - HEPATIC CIRRHOSIS [None]
